FAERS Safety Report 8060451-3 (Version None)
Quarter: 2012Q1

REPORT INFORMATION
  Report Type: 
  Country: None (occurrence: None)
  Receive Date: 20120120
  Receipt Date: 20120113
  Transmission Date: 20120608
  Serious: Yes (Other)
  Sender: FDA-Public Use
  Company Number: FR-GLAXOSMITHKLINE-B0775143A

PATIENT
  Sex: Female

DRUGS (12)
  1. BISOPROLOL FUMARATE [Concomitant]
     Route: 065
  2. SINEMET [Concomitant]
     Route: 065
  3. MIRTAZAPINE [Concomitant]
     Route: 065
  4. LITHIUM CARBONATE [Concomitant]
     Route: 065
  5. PREVISCAN [Concomitant]
     Route: 065
  6. PREDNISONE TAB [Concomitant]
     Route: 065
  7. ZANTAC [Concomitant]
     Route: 065
  8. CYMBALTA [Concomitant]
     Route: 065
  9. LAMICTAL [Suspect]
     Indication: PRODUCT USED FOR UNKNOWN INDICATION
     Dosage: 25MG PER DAY
     Route: 048
     Dates: start: 20110801, end: 20110908
  10. RAMIPRIL [Concomitant]
     Route: 065
  11. IMURAN [Concomitant]
     Route: 065
  12. NEORAL [Concomitant]
     Route: 065

REACTIONS (2)
  - HEPATOCELLULAR INJURY [None]
  - CHOLESTASIS [None]
